FAERS Safety Report 9646542 (Version 2)
Quarter: 2014Q1

REPORT INFORMATION
  Report Type: Spontaneous
  Country: US (occurrence: US)
  Receive Date: 20131025
  Receipt Date: 20140305
  Transmission Date: 20141002
  Serious: Yes (Other)
  Sender: FDA-Public Use
  Company Number: US-ASTRAZENECA-2013SE77218

PATIENT
  Age: 54 Year
  Sex: Female
  Weight: 59 kg

DRUGS (10)
  1. SYMBICORT [Suspect]
     Indication: CHRONIC OBSTRUCTIVE PULMONARY DISEASE
     Dosage: 160/4.5 TWO PUFFS BID
     Route: 055
     Dates: start: 2013, end: 20140222
  2. SYMBICORT [Suspect]
     Indication: EMPHYSEMA
     Dosage: 160/4.5 TWO PUFFS BID
     Route: 055
     Dates: start: 2013, end: 20140222
  3. PREDNISONE [Suspect]
     Dosage: HIGH DOSE
     Route: 065
  4. ALBUTEROL [Concomitant]
     Indication: ASTHMA
     Dosage: 60MCG 2 PUFFS PRN
     Route: 055
     Dates: start: 2011
  5. ALBUTEROL [Concomitant]
     Indication: CHRONIC OBSTRUCTIVE PULMONARY DISEASE
     Dosage: 60MCG 2 PUFFS PRN
     Route: 055
     Dates: start: 2011
  6. NORVASC [Concomitant]
     Indication: HYPERTENSION
     Route: 048
     Dates: start: 2012
  7. PREMARIN [Concomitant]
     Indication: HYSTERECTOMY
     Route: 048
     Dates: start: 2007
  8. PREMARIN [Concomitant]
     Indication: HORMONE THERAPY
     Route: 048
     Dates: start: 2007
  9. SPIRIVA [Concomitant]
     Indication: CHRONIC OBSTRUCTIVE PULMONARY DISEASE
     Route: 055
     Dates: start: 2011
  10. PROVENTIL [Concomitant]
     Indication: INHALATION THERAPY
     Route: 055
     Dates: start: 2013

REACTIONS (8)
  - Lung neoplasm malignant [Not Recovered/Not Resolved]
  - Hypoaesthesia [Recovered/Resolved]
  - Malaise [Unknown]
  - Dyspnoea [Unknown]
  - Swollen tongue [Recovered/Resolved]
  - Oedema mouth [Recovered/Resolved]
  - Dysphonia [Recovered/Resolved]
  - Drug dose omission [Unknown]
